FAERS Safety Report 7445065-8 (Version None)
Quarter: 2011Q2

REPORT INFORMATION
  Report Type: 
  Country: None (occurrence: None)
  Receive Date: 20110429
  Receipt Date: 20110418
  Transmission Date: 20111010
  Serious: Yes (Hospitalization)
  Sender: FDA-Public Use
  Company Number: CA-JNJFOC-20110410773

PATIENT
  Sex: Female
  Weight: 66.6 kg

DRUGS (5)
  1. CORTENEMA [Concomitant]
  2. IMITREX [Concomitant]
  3. REMICADE [Suspect]
     Indication: CROHN'S DISEASE
     Route: 042
  4. UNSPECIFIED BIRTH CONTROL [Concomitant]
  5. PREDNISONE [Concomitant]

REACTIONS (2)
  - SURGERY [None]
  - INFECTION [None]
